FAERS Safety Report 25947583 (Version 1)
Quarter: 2025Q4

REPORT INFORMATION
  Report Type: Spontaneous
  Country: US (occurrence: US)
  Receive Date: 20251022
  Receipt Date: 20251022
  Transmission Date: 20260117
  Serious: Yes (Life-Threatening, Other)
  Sender: CIPLA
  Company Number: US-CIPLA LTD.-2025US12885

PATIENT

DRUGS (3)
  1. VIGABATRIN [Suspect]
     Active Substance: VIGABATRIN
     Indication: Infantile spasms
     Dosage: 48 MILLIGRAM/KILOGRAM/D, BID
     Route: 065
  2. VIGABATRIN [Suspect]
     Active Substance: VIGABATRIN
     Dosage: 48 MILLIGRAM/KILOGRAM/D, TID
     Route: 065
  3. VIGABATRIN [Suspect]
     Active Substance: VIGABATRIN
     Dosage: 108 MG/KG/D DIVIDED TID
     Route: 065

REACTIONS (2)
  - Hydrocephalus [Recovering/Resolving]
  - Magnetic resonance imaging head abnormal [Recovering/Resolving]
